FAERS Safety Report 6383643-8 (Version None)
Quarter: 2009Q3

REPORT INFORMATION
  Report Type: 
  Country: None (occurrence: None)
  Receive Date: 20090929
  Receipt Date: 20090929
  Transmission Date: 20100115
  Serious: Yes (Other)
  Sender: FDA-Public Use
  Company Number: None

PATIENT
  Age: 16 Year
  Sex: Female
  Weight: 60.5 kg

DRUGS (1)
  1. LEVETIRACETAM [Suspect]
     Indication: MYOCLONIC EPILEPSY
     Dosage: 500MG TWICE DAILY PO
     Route: 048
     Dates: start: 20090921, end: 20090926

REACTIONS (2)
  - DIZZINESS [None]
  - LETHARGY [None]
